FAERS Safety Report 18043602 (Version 4)
Quarter: 2021Q4

REPORT INFORMATION
  Report Type: Other
  Country: AU (occurrence: AU)
  Receive Date: 20200720
  Receipt Date: 20211223
  Transmission Date: 20220303
  Serious: Yes (Hospitalization, Other)
  Sender: FDA-Public Use
  Company Number: AU-TOLMAR, INC.-20AU021918

PATIENT
  Age: 80 Year
  Sex: Male

DRUGS (1)
  1. ELIGARD [Suspect]
     Active Substance: LEUPROLIDE ACETATE
     Indication: Prostate cancer
     Dosage: 22.5 MG, Q 3 MONTH
     Dates: start: 20171010

REACTIONS (6)
  - Pneumonia [Recovering/Resolving]
  - Post procedural infection [Unknown]
  - Transient ischaemic attack [Unknown]
  - Balance disorder [Unknown]
  - Fall [Unknown]
  - Scratch [Unknown]

NARRATIVE: CASE EVENT DATE: 20200601
